FAERS Safety Report 8560440-6 (Version None)
Quarter: 2012Q3

REPORT INFORMATION
  Report Type: 
  Country: None (occurrence: None)
  Receive Date: 20120802
  Receipt Date: 20120725
  Transmission Date: 20120928
  Serious: Yes (Hospitalization, Other)
  Sender: FDA-Public Use
  Company Number: US-009507513-2010SP025088

PATIENT

DRUGS (3)
  1. NUVARING [Suspect]
     Indication: CONTRACEPTION
     Dates: start: 20060522, end: 20080401
  2. IBUPROFEN [Concomitant]
     Indication: ANALGESIC THERAPY
     Dosage: 2-3 TIMES PER MONTH (ROUTE NOT PROVIDED AND ^RECOMMENDED DOSAGE ON BOX^); ALSO REPORTED AS 4X/WK
     Route: 065
  3. NAPROXEN [Concomitant]

REACTIONS (4)
  - PULMONARY EMBOLISM [None]
  - LIGAMENT SPRAIN [None]
  - ANXIETY [None]
  - DEEP VEIN THROMBOSIS [None]
